FAERS Safety Report 7423009-2 (Version None)
Quarter: 2011Q2

REPORT INFORMATION
  Report Type: 
  Country: None (occurrence: None)
  Receive Date: 20110419
  Receipt Date: 20110411
  Transmission Date: 20111010
  Serious: Yes (Life-Threatening, Hospitalization)
  Sender: FDA-Public Use
  Company Number: GB-SANOFI-AVENTIS-2011SA003241

PATIENT
  Sex: Female

DRUGS (5)
  1. ISONIAZID [Suspect]
     Route: 065
     Dates: start: 20101223
  2. PYRIDOXINE [Suspect]
     Route: 065
     Dates: start: 20101223
  3. RIFAMPICIN [Suspect]
     Route: 048
     Dates: start: 20101223
  4. ETHAMBUTOL HYDROCHLORIDE [Suspect]
     Route: 065
     Dates: start: 20101223
  5. PYRAZINAMIDE [Suspect]
     Route: 065
     Dates: start: 20101223

REACTIONS (2)
  - ANAEMIA [None]
  - ABORTION SPONTANEOUS [None]
